FAERS Safety Report 5228017-8 (Version None)
Quarter: 2007Q1

REPORT INFORMATION
  Report Type: 
  Country: None (occurrence: None)
  Receive Date: 20061205
  Receipt Date: 20060921
  Transmission Date: 20070707
  Serious: No
  Sender: FDA-Public Use
  Company Number: PHEH2006US09608

PATIENT
  Age: 80 Year
  Sex: Male
  Weight: 82.1 kg

DRUGS (2)
  1. EXJADE [Suspect]
     Indication: IRON OVERLOAD
     Dosage: SEE IMAGE
     Route: 048
     Dates: start: 20060630, end: 20060721
  2. EXJADE [Suspect]
     Indication: IRON OVERLOAD
     Dosage: SEE IMAGE
     Route: 048
     Dates: start: 20060721, end: 20060815

REACTIONS (3)
  - BLOOD CREATININE INCREASED [None]
  - BLOOD UREA INCREASED [None]
  - HAEMOGLOBIN DECREASED [None]
